FAERS Safety Report 25808843 (Version 1)
Quarter: 2025Q3

REPORT INFORMATION
  Report Type: Spontaneous
  Country: US (occurrence: US)
  Receive Date: 20250916
  Receipt Date: 20250916
  Transmission Date: 20251021
  Serious: Yes (Other)
  Sender: NOVARTIS
  Company Number: US-002147023-NVSC2025US141798

PATIENT
  Age: 33 Year
  Sex: Male

DRUGS (1)
  1. TRAMETINIB [Suspect]
     Active Substance: TRAMETINIB
     Indication: Glioneuronal tumour
     Route: 065

REACTIONS (3)
  - Cardiomyopathy [Recovering/Resolving]
  - Off label use [Unknown]
  - Device related infection [Unknown]
